FAERS Safety Report 8320943-6 (Version None)
Quarter: 2012Q2

REPORT INFORMATION
  Report Type: 
  Country: None (occurrence: None)
  Receive Date: 20120430
  Receipt Date: 20120424
  Transmission Date: 20120825
  Serious: Yes (Other)
  Sender: FDA-Public Use
  Company Number: PHHY2012GB011196

PATIENT
  Age: 37 Year
  Sex: Female
  Weight: 85 kg

DRUGS (5)
  1. CITALOPRAM [Suspect]
     Dates: start: 20120130
  2. CLOBETASONE BUTYRATE [Concomitant]
     Dates: start: 20120130
  3. FLUOXETINE [Suspect]
     Dosage: 2 MG, UNK
     Dates: start: 20110908, end: 20111130
  4. FLUOXETINE [Suspect]
     Dosage: 4 MG, UNK
  5. DERMOL SOL [Concomitant]
     Dates: start: 20120130

REACTIONS (3)
  - GALACTORRHOEA [None]
  - AMENORRHOEA [None]
  - HYPERPROLACTINAEMIA [None]
